FAERS Safety Report 14776251 (Version 2)
Quarter: 2018Q2

REPORT INFORMATION
  Report Type: Not Available
  Country: US (occurrence: US)
  Receive Date: 20180418
  Receipt Date: 20180517
  Transmission Date: 20180711
  Serious: No
  Sender: FDA-Public Use
  Company Number: US-NEUROCRINE BIOSCIENCES INC.-2018NBI00939

PATIENT
  Sex: Male

DRUGS (1)
  1. INGREZZA [Suspect]
     Active Substance: VALBENAZINE
     Indication: TARDIVE DYSKINESIA
     Route: 048
     Dates: start: 20180302

REACTIONS (2)
  - Dizziness [Not Recovered/Not Resolved]
  - Drooling [Not Recovered/Not Resolved]

NARRATIVE: CASE EVENT DATE: 2018
